FAERS Safety Report 20700249 (Version 1)
Quarter: 2022Q2

REPORT INFORMATION
  Report Type: Spontaneous
  Country: US (occurrence: None)
  Receive Date: 20220410
  Receipt Date: 20220410
  Transmission Date: 20220721
  Serious: Yes (Hospitalization)
  Sender: FDA-Public Use
  Company Number: None

PATIENT
  Age: 24 Year
  Sex: Female
  Weight: 40.5 kg

DRUGS (5)
  1. EMGALITY [Suspect]
     Active Substance: GALCANEZUMAB-GNLM
     Indication: Migraine prophylaxis
     Dosage: OTHER QUANTITY : 1 INJECTION(S);?OTHER FREQUENCY : EVERY 28 DAYS;?
     Route: 058
  2. TOPAMAX [Concomitant]
     Active Substance: TOPIRAMATE
  3. SPIRONOLACTONE [Concomitant]
  4. Vitamin D3 - 5,000 IU [Concomitant]
  5. Magnesium - 500mg [Concomitant]

REACTIONS (7)
  - Abdominal pain upper [None]
  - Abdominal pain [None]
  - Diarrhoea [None]
  - Nausea [None]
  - Heart rate increased [None]
  - Chest discomfort [None]
  - Anxiety [None]

NARRATIVE: CASE EVENT DATE: 20220407
